FAERS Safety Report 11409497 (Version 1)
Quarter: 2015Q3

REPORT INFORMATION
  Report Type: Spontaneous
  Country: US (occurrence: None)
  Receive Date: 20150820
  Receipt Date: 20150820
  Transmission Date: 20151125
  Serious: Yes (Disabling)
  Sender: FDA-Public Use
  Company Number: None

PATIENT
  Age: 20 Year
  Sex: Male
  Weight: 68.04 kg

DRUGS (5)
  1. OMEGA 3-6-9 [Concomitant]
     Active Substance: FISH OIL
  2. ACCUTANE [Suspect]
     Active Substance: ISOTRETINOIN
     Indication: ACNE CYSTIC
     Dosage: 1 PILL
     Route: 048
     Dates: start: 20130520, end: 20130731
  3. VALERIAN ROOT [Concomitant]
     Active Substance: VALERIAN
  4. DIGESTIVE ENZYMES PROBIOTCS [Concomitant]
  5. MULTIVITAMIN [Concomitant]
     Active Substance: VITAMINS

REACTIONS (12)
  - Dry skin [None]
  - Libido decreased [None]
  - Erectile dysfunction [None]
  - Nervous system disorder [None]
  - Chapped lips [None]
  - Diarrhoea [None]
  - Lip dry [None]
  - Disturbance in attention [None]
  - Dry eye [None]
  - Irritable bowel syndrome [None]
  - Fatigue [None]
  - Abnormal faeces [None]

NARRATIVE: CASE EVENT DATE: 20130820
